FAERS Safety Report 21665308 (Version 1)
Quarter: 2022Q4

REPORT INFORMATION
  Report Type: Report from Study
  Country: US (occurrence: US)
  Receive Date: 20221201
  Receipt Date: 20221201
  Transmission Date: 20230113
  Serious: Yes (Hospitalization)
  Sender: FDA-Public Use
  Company Number: US-ABBVIE-4218750

PATIENT
  Age: 56 Year
  Sex: Female
  Weight: 62 kg

DRUGS (3)
  1. HUMIRA [Suspect]
     Active Substance: ADALIMUMAB
     Indication: Product used for unknown indication
     Dosage: 80MG
     Route: 058
     Dates: end: 20211006
  2. TRAMADOL [Concomitant]
     Active Substance: TRAMADOL
     Indication: Product used for unknown indication
     Dosage: 50MG AS REQUIRED
  3. METHIMAZOLE [Concomitant]
     Active Substance: METHIMAZOLE
     Indication: Product used for unknown indication
     Dosage: 10MG?FREQUENCY TEXT: QD

REACTIONS (8)
  - Crohn^s disease [Unknown]
  - Ulcer [Unknown]
  - Nasopharyngitis [Unknown]
  - Erythema [Unknown]
  - Haematochezia [Unknown]
  - Diarrhoea [Unknown]
  - Pyrexia [Unknown]
  - Mucous stools [Unknown]

NARRATIVE: CASE EVENT DATE: 20210825
